FAERS Safety Report 5492221-4 (Version None)
Quarter: 2007Q4

REPORT INFORMATION
  Report Type: 
  Country: None (occurrence: None)
  Receive Date: 20071022
  Receipt Date: 20071018
  Transmission Date: 20080405
  Serious: Yes (Death, Hospitalization)
  Sender: FDA-Public Use
  Company Number: ES-ASTRAZENECA-2007AC01872

PATIENT
  Age: 61 Year
  Sex: Male

DRUGS (4)
  1. CASODEX [Suspect]
     Indication: PROSTATE CANCER
     Route: 048
     Dates: start: 20070301, end: 20070619
  2. OMEPRAZOLE [Suspect]
     Dates: start: 20070101
  3. LEUPROLIDE ACETATE [Suspect]
     Dates: start: 20070101
  4. RADIOTHERAPY [Concomitant]

REACTIONS (3)
  - ENCEPHALOPATHY [None]
  - HEPATITIS TOXIC [None]
  - RENAL FAILURE [None]
